FAERS Safety Report 13482707 (Version 1)
Quarter: 2017Q2

REPORT INFORMATION
  Report Type: Spontaneous
  Country: US (occurrence: US)
  Receive Date: 20170426
  Receipt Date: 20170426
  Transmission Date: 20170830
  Serious: No
  Sender: FDA-Public Use
  Company Number: US-BIOGEN-2016BI00278116

PATIENT
  Sex: Female

DRUGS (2)
  1. TYSABRI [Suspect]
     Active Substance: NATALIZUMAB
     Indication: MULTIPLE SCLEROSIS
     Route: 065
     Dates: start: 20150513
  2. TYSABRI [Suspect]
     Active Substance: NATALIZUMAB
     Route: 065
     Dates: start: 20150513, end: 20160804

REACTIONS (6)
  - Fall [Recovered/Resolved]
  - Foot fracture [Unknown]
  - Impaired driving ability [Unknown]
  - Dysgraphia [Unknown]
  - Gait disturbance [Not Recovered/Not Resolved]
  - Abasia [Unknown]
